FAERS Safety Report 7676974-2 (Version None)
Quarter: 2011Q3

REPORT INFORMATION
  Report Type: 
  Country: None (occurrence: None)
  Receive Date: 20110811
  Receipt Date: 20110809
  Transmission Date: 20111222
  Serious: Yes (Death, Hospitalization)
  Sender: FDA-Public Use
  Company Number: ES-SANOFI-AVENTIS-2011SA036562

PATIENT
  Age: 59 Year
  Sex: Male

DRUGS (9)
  1. OMEPRAZOLE [Concomitant]
  2. OXALIPLATIN [Suspect]
     Indication: COLORECTAL CANCER
     Route: 042
     Dates: start: 20101208
  3. METFORMIN HCL [Concomitant]
  4. ACETAMINOPHEN [Concomitant]
     Dates: start: 20110209
  5. BEVACIZUMAB [Suspect]
     Indication: COLORECTAL CANCER
     Route: 042
     Dates: start: 20101208
  6. CAPECITABINE [Suspect]
     Indication: COLORECTAL CANCER
     Dosage: FREQUENCY: 1800 MG 4/12 HOURS DAILY
     Route: 048
     Dates: start: 20101208
  7. FERROUS SULFATE TAB [Concomitant]
  8. ENALAPRIL MALEATE [Concomitant]
  9. TRAMADOL HCL [Concomitant]
     Dates: start: 20110428

REACTIONS (3)
  - DISEASE PROGRESSION [None]
  - PYREXIA [None]
  - ACUTE PULMONARY OEDEMA [None]
